FAERS Safety Report 6199954-5 (Version None)
Quarter: 2009Q2

REPORT INFORMATION
  Report Type: 
  Country: None (occurrence: None)
  Receive Date: 20090520
  Receipt Date: 20090520
  Transmission Date: 20091009
  Serious: Yes (Other)
  Sender: FDA-Public Use
  Company Number: None

PATIENT
  Sex: Female
  Weight: 58.9676 kg

DRUGS (2)
  1. CHANTIX [Suspect]
     Indication: SMOKING CESSATION THERAPY
     Dosage: 1 MG 2X DAILY PO
     Route: 048
     Dates: start: 20090428, end: 20090512
  2. FENTANYL-100 [Suspect]
     Indication: PAIN
     Dosage: FENTANYL 1 PATCH WORN FOR 3 TRANSDERMAL
     Route: 062
     Dates: start: 20090429, end: 20090518

REACTIONS (8)
  - COLD SWEAT [None]
  - DRUG INTERACTION [None]
  - DYSPNOEA [None]
  - FEELING COLD [None]
  - HEART RATE INCREASED [None]
  - HOT FLUSH [None]
  - JOINT SWELLING [None]
  - OEDEMA PERIPHERAL [None]
